FAERS Safety Report 5675065-X (Version None)
Quarter: 2008Q1

REPORT INFORMATION
  Report Type: 
  Country: None (occurrence: None)
  Receive Date: 20080320
  Receipt Date: 20080313
  Transmission Date: 20080703
  Serious: Yes (Hospitalization)
  Sender: FDA-Public Use
  Company Number: US-GENENTECH-257253

PATIENT
  Sex: Female

DRUGS (1)
  1. RAPTIVA [Suspect]
     Indication: PSORIASIS
     Dosage: 1 MG/KG, 1/WEEK
     Route: 058
     Dates: start: 20070701, end: 20070901

REACTIONS (3)
  - ADVERSE DRUG REACTION [None]
  - HYPOTHYROIDISM [None]
  - MYALGIA [None]
